FAERS Safety Report 17240987 (Version 1)
Quarter: 2020Q1

REPORT INFORMATION
  Report Type: Report from Study
  Country: ES (occurrence: ES)
  Receive Date: 20200107
  Receipt Date: 20200107
  Transmission Date: 20200409
  Serious: Yes (Other)
  Sender: FDA-Public Use
  Company Number: ES-TEVA-2019-ES-1048615

PATIENT
  Age: 50 Year
  Sex: Female

DRUGS (1)
  1. COPAXONE [Suspect]
     Active Substance: GLATIRAMER ACETATE
     Indication: RELAPSING-REMITTING MULTIPLE SCLEROSIS
     Route: 058
     Dates: start: 20161026, end: 2019

REACTIONS (12)
  - Product quality issue [Unknown]
  - Dissociation [Unknown]
  - Dyspnoea [Recovered/Resolved]
  - Discomfort [Unknown]
  - Tremor [Unknown]
  - Feeling hot [Recovered/Resolved]
  - Asphyxia [Unknown]
  - Blood glucose increased [Recovered/Resolved]
  - Hypertension [Recovered/Resolved]
  - Immediate post-injection reaction [Recovered/Resolved]
  - Back pain [Recovered/Resolved]
  - Fall [Unknown]

NARRATIVE: CASE EVENT DATE: 201904
